FAERS Safety Report 10224515 (Version 1)
Quarter: 2014Q2

REPORT INFORMATION
  Report Type: Spontaneous
  Country: GB (occurrence: GB)
  Receive Date: 20140609
  Receipt Date: 20140609
  Transmission Date: 20141212
  Serious: Yes (Hospitalization, Disabling)
  Sender: FDA-Public Use
  Company Number: PHHY2014GB066645

PATIENT
  Age: 73 Year
  Sex: Female
  Weight: 70 kg

DRUGS (5)
  1. RISPERIDONE [Suspect]
     Indication: AGGRESSION
     Dosage: 1MG IN THE MORNING, 2MG AT NIGHT
     Route: 048
     Dates: start: 201307
  2. BUTRANS [Suspect]
     Indication: BACK PAIN
     Dosage: 10 UG, UNK
     Route: 062
     Dates: start: 20140508, end: 20140518
  3. LORAZEPAM [Concomitant]
  4. PARACETAMOL [Concomitant]
  5. PREGABALIN [Concomitant]

REACTIONS (2)
  - Delirium [Not Recovered/Not Resolved]
  - Tremor [Not Recovered/Not Resolved]
